FAERS Safety Report 9556326 (Version 1)
Quarter: 2013Q3

REPORT INFORMATION
  Report Type: Spontaneous
  Country: US (occurrence: None)
  Receive Date: 20130906
  Receipt Date: 20130906
  Transmission Date: 20140515
  Serious: Yes (Hospitalization)
  Sender: FDA-Public Use
  Company Number: 163-POMAL-13061939

PATIENT
  Age: 72 Year
  Sex: Male

DRUGS (8)
  1. POMALYST [Suspect]
     Indication: PLASMA CELL MYELOMA
     Route: 048
     Dates: start: 20130425, end: 20130603
  2. ACYCLOVIR [Concomitant]
  3. ALLOPURINOL [Concomitant]
  4. SULFAMETHOXAZOLE/TRIMETHOPRIM (BACTRIM) [Concomitant]
  5. AMLODIPINE [Concomitant]
  6. LABETAOLOL [Concomitant]
  7. TRAZODONE [Concomitant]
  8. POTASSIUM [Concomitant]

REACTIONS (3)
  - Hypercalcaemia of malignancy [None]
  - Plasma cell myeloma [None]
  - Treatment failure [None]
